FAERS Safety Report 9149362 (Version 2)
Quarter: 2013Q1

REPORT INFORMATION
  Report Type: Spontaneous
  Country: US (occurrence: US)
  Receive Date: 20130308
  Receipt Date: 20130318
  Transmission Date: 20140127
  Serious: Yes (Other)
  Sender: FDA-Public Use
  Company Number: US-PFIZER INC-2013079549

PATIENT
  Age: 52 Year
  Sex: Female
  Weight: 59 kg

DRUGS (7)
  1. LYRICA [Suspect]
     Indication: ABDOMINAL PAIN
     Dosage: UNK
     Dates: start: 20130211
  2. LYRICA [Suspect]
     Indication: BILIARY DYSKINESIA
     Dosage: 275 MG, 1X/DAY
     Dates: start: 20130304
  3. NORCO [Concomitant]
     Dosage: UNK, 1X/DAY
  4. FLEXERIL [Concomitant]
     Dosage: 10 MG, 1X/DAY
  5. FENTANYL [Concomitant]
     Dosage: UNK
  6. XANAX [Concomitant]
     Dosage: UNK, AS NEEDED
  7. FIORICET [Concomitant]
     Dosage: UNK

REACTIONS (5)
  - Mental disorder [Unknown]
  - Somnambulism [Unknown]
  - Off label use [Unknown]
  - Insomnia [Unknown]
  - Abnormal behaviour [Unknown]
